FAERS Safety Report 19730302 (Version 1)
Quarter: 2021Q3

REPORT INFORMATION
  Report Type: Spontaneous
  Country: CN (occurrence: CN)
  Receive Date: 20210820
  Receipt Date: 20210820
  Transmission Date: 20211014
  Serious: Yes (Other)
  Sender: FDA-Public Use
  Company Number: CN-JNJFOC-20210836492

PATIENT
  Age: 50 Year
  Sex: Male
  Weight: 70 kg

DRUGS (9)
  1. SODIUM CHLORIDE. [Concomitant]
     Active Substance: SODIUM CHLORIDE
     Indication: PRODUCT USED FOR UNKNOWN INDICATION
     Dosage: 100.00 MILLILITER, 2X/DAY (BID)
     Route: 041
     Dates: start: 20210719, end: 20210726
  2. CETIRIZINE HYDROCHLORIDE. [Suspect]
     Active Substance: CETIRIZINE HYDROCHLORIDE
     Indication: RASH
     Dosage: 5 MILLIGRAM, 2X/DAY (BID)
     Route: 048
     Dates: start: 20210726
  3. SULPERAZON [Suspect]
     Active Substance: CEFOPERAZONE SODIUM\SULBACTAM SODIUM
     Indication: INFECTION
     Dosage: 1.50 GRAM, 2X/DAY (BID)
     Route: 041
     Dates: start: 20210719, end: 20210726
  4. DEXAMETHASONE SODIUM PHOSPHATE. [Concomitant]
     Active Substance: DEXAMETHASONE SODIUM PHOSPHATE
     Indication: RASH
     Dosage: 5 MILLIGRAM
     Route: 041
     Dates: start: 20210726
  5. CALAMINE [Concomitant]
     Active Substance: CALAMINE\FERRIC OXIDE RED\ZINC OXIDE
     Indication: RASH
     Dosage: UNK, 3X/DAY (TID)
     Route: 061
     Dates: start: 20210727
  6. GLUCOSE [Concomitant]
     Active Substance: DEXTROSE
     Indication: RASH
     Dosage: 100 MILLILITER, ONCE DAILY (QD)
     Route: 041
     Dates: start: 20210727
  7. EBASTINE [Concomitant]
     Active Substance: EBASTINE
     Indication: RASH
     Dosage: 10 MILLIGRAM, ONCE DAILY (QD)
     Route: 048
     Dates: start: 20210727
  8. COMPOUND GLYCYRRHIZIN [CYSTEINE HYDROCHLORIDE;GLYCINE;GLYCYRRHIZIC ACI [Concomitant]
     Indication: RASH
     Dosage: 50 MILLIGRAM, 3X/DAY (TID), TAKEN AFTER MEALS
     Route: 065
     Dates: start: 20210727
  9. CALCIUM GLUCONATE. [Concomitant]
     Active Substance: CALCIUM GLUCONATE
     Indication: RASH
     Dosage: 10 MILLILITER
     Route: 065
     Dates: start: 20210727

REACTIONS (5)
  - Drug eruption [Recovering/Resolving]
  - Skin warm [Recovering/Resolving]
  - Erythema multiforme [Recovering/Resolving]
  - Inappropriate schedule of product administration [Unknown]
  - Pruritus [Recovering/Resolving]

NARRATIVE: CASE EVENT DATE: 20210726
